FAERS Safety Report 7734219-9 (Version None)
Quarter: 2011Q3

REPORT INFORMATION
  Report Type: 
  Country: None (occurrence: None)
  Receive Date: 20110901
  Receipt Date: 20110819
  Transmission Date: 20111222
  Serious: Yes (Hospitalization)
  Sender: FDA-Public Use
  Company Number: TPA2011A05085

PATIENT
  Age: 72 Year
  Sex: Male

DRUGS (1)
  1. ULORIC [Suspect]
     Indication: GOUT
     Dosage: PER ORAL
     Route: 048
     Dates: start: 20110101, end: 20110101

REACTIONS (7)
  - MALAISE [None]
  - PANCREATITIS [None]
  - TRANSAMINASES INCREASED [None]
  - MENTAL STATUS CHANGES [None]
  - LEUKOPENIA [None]
  - ANAEMIA [None]
  - THROMBOCYTOPENIA [None]
